FAERS Safety Report 14244253 (Version 9)
Quarter: 2018Q1

REPORT INFORMATION
  Report Type: Spontaneous
  Country: FR (occurrence: FR)
  Receive Date: 20171201
  Receipt Date: 20180305
  Transmission Date: 20180508
  Serious: Yes (Death, Life-Threatening, Hospitalization, Other)
  Sender: FDA-Public Use
  Company Number: FR-PFIZER INC-2017513644

PATIENT
  Age: 71 Year
  Sex: Female

DRUGS (2)
  1. METHOTREXATE SODIUM. [Suspect]
     Active Substance: METHOTREXATE SODIUM
     Indication: RHEUMATOID ARTHRITIS
     Dosage: 12.5 MG, WEEKLY
     Route: 065
  2. PREDNISONE. [Suspect]
     Active Substance: PREDNISONE
     Indication: RHEUMATOID ARTHRITIS
     Dosage: 6 MG, DAILY (6 MG/DAY)
     Route: 065

REACTIONS (8)
  - Cardiac failure acute [Fatal]
  - Anaemia macrocytic [Fatal]
  - Isosporiasis [Fatal]
  - Acute kidney injury [Fatal]
  - Hypotension [Fatal]
  - Systemic inflammatory response syndrome [Fatal]
  - Cardiogenic shock [Fatal]
  - Dehydration [Fatal]

NARRATIVE: CASE EVENT DATE: 201612
